FAERS Safety Report 10357616 (Version 1)
Quarter: 2014Q3

REPORT INFORMATION
  Report Type: Spontaneous
  Country: US (occurrence: US)
  Receive Date: 20140801
  Receipt Date: 20140801
  Transmission Date: 20150326
  Serious: No
  Sender: FDA-Public Use
  Company Number: US-009507513-1407USA014447

PATIENT
  Sex: Female

DRUGS (1)
  1. CLARITIN [Suspect]
     Active Substance: LORATADINE
     Indication: HYPERSENSITIVITY
     Dosage: UNK, UNKNOWN
     Route: 048
     Dates: start: 20140720

REACTIONS (4)
  - Erythema [Unknown]
  - Unevaluable event [Unknown]
  - Off label use [Unknown]
  - Feeling hot [Unknown]

NARRATIVE: CASE EVENT DATE: 20140720
